FAERS Safety Report 13672532 (Version 2)
Quarter: 2018Q2

REPORT INFORMATION
  Report Type: Spontaneous
  Country: DE (occurrence: DE)
  Receive Date: 20170620
  Receipt Date: 20180504
  Transmission Date: 20180711
  Serious: Yes (Other)
  Sender: FDA-Public Use
  Company Number: DE-TORRENT-00006618

PATIENT
  Age: 45 Year
  Sex: Female
  Weight: 66 kg

DRUGS (1)
  1. LEVOFLOXACIN. [Suspect]
     Active Substance: LEVOFLOXACIN
     Indication: CYSTITIS NONINFECTIVE
     Dosage: 250MG
     Route: 048
     Dates: start: 20161229

REACTIONS (12)
  - Arthralgia [Unknown]
  - Connective tissue disorder [Unknown]
  - Myalgia [Unknown]
  - Musculoskeletal discomfort [Unknown]
  - Tendon pain [Unknown]
  - Pain in extremity [Unknown]
  - Muscular weakness [Unknown]
  - Tendon pain [Unknown]
  - Asthenia [Unknown]
  - Burning sensation [Unknown]
  - Formication [Unknown]
  - Fatigue [Unknown]

NARRATIVE: CASE EVENT DATE: 201701
